FAERS Safety Report 8858957 (Version 1)
Quarter: 2012Q4

REPORT INFORMATION
  Report Type: Report from Study
  Country: CA (occurrence: CA)
  Receive Date: 20121024
  Receipt Date: 20121024
  Transmission Date: 20130627
  Serious: Yes (Hospitalization)
  Sender: FDA-Public Use
  Company Number: CA-JNJFOC-20121007617

PATIENT
  Age: 54 Year
  Sex: Female
  Weight: 60.2 kg

DRUGS (9)
  1. REMICADE [Suspect]
     Indication: CROHN^S DISEASE
     Route: 042
     Dates: start: 20110927
  2. VITAMIN B12 [Concomitant]
     Route: 065
  3. IRON [Concomitant]
     Route: 065
  4. DILTIAZEM [Concomitant]
     Route: 065
  5. VIT D [Concomitant]
     Route: 065
  6. PANTOLOC [Concomitant]
     Route: 065
  7. AZATHIOPRINE [Concomitant]
     Route: 065
  8. AXERT [Concomitant]
     Route: 065
  9. OXYCONTIN [Concomitant]
     Route: 065

REACTIONS (4)
  - Abdominal pain [Not Recovered/Not Resolved]
  - Intestinal stenosis [Not Recovered/Not Resolved]
  - Nausea [Not Recovered/Not Resolved]
  - Frequent bowel movements [Not Recovered/Not Resolved]
